FAERS Safety Report 4749922-2 (Version None)
Quarter: 2005Q3

REPORT INFORMATION
  Report Type: 
  Country: None (occurrence: None)
  Receive Date: 20050822
  Receipt Date: 20050811
  Transmission Date: 20060218
  Serious: Yes (Other)
  Sender: FDA-Public Use
  Company Number: HQWYE061701JUN05

PATIENT
  Age: 70 Year
  Sex: Male

DRUGS (2)
  1. EFFEXOR [Suspect]
     Indication: DEPRESSION
     Dosage: 75 MG 1X PER 1 DAY
     Route: 048
  2. CYMBALTA [Suspect]
     Indication: INCONTINENCE
     Dates: start: 20050301, end: 20050501

REACTIONS (7)
  - AGGRESSION [None]
  - ALCOHOLISM [None]
  - CONCOMITANT DISEASE AGGRAVATED [None]
  - IMPAIRED DRIVING ABILITY [None]
  - PERSONALITY CHANGE [None]
  - ROAD TRAFFIC ACCIDENT [None]
  - THINKING ABNORMAL [None]
